FAERS Safety Report 9018315 (Version 1)
Quarter: 2013Q1

REPORT INFORMATION
  Report Type: Spontaneous
  Country: US (occurrence: US)
  Receive Date: 20130117
  Receipt Date: 20130117
  Transmission Date: 20140127
  Serious: Yes (Hospitalization)
  Sender: FDA-Public Use
  Company Number: US-BAYER-2013-004500

PATIENT
  Age: 54 Year
  Sex: Female
  Weight: 87.18 kg

DRUGS (6)
  1. ACETYLSALICYLIC ACID [Suspect]
     Indication: PRODUCT USED FOR UNKNOWN INDICATION
     Dosage: UNK
     Dates: start: 20121107
  2. ALEVE CAPLET/TABLET,MIDOL EXTENDED RELIEF CAPLET [Suspect]
     Indication: PAIN
  3. TREPROSTINOL [Suspect]
     Indication: COR PULMONALE CHRONIC
     Dosage: 18-54 MCG, QID
     Dates: start: 20120711
  4. TREPROSTINOL [Suspect]
     Indication: COR PULMONALE CHRONIC
     Dosage: 18-54 MCG, QID
  5. DIURETICS [Concomitant]
  6. AMBRISENTAN [Concomitant]

REACTIONS (4)
  - Gastric ulcer [Recovered/Resolved]
  - Pain [Unknown]
  - Haemorrhage [None]
  - Drug interaction [None]
